FAERS Safety Report 12804078 (Version 5)
Quarter: 2017Q1

REPORT INFORMATION
  Report Type: Report from Study
  Country: CO (occurrence: CO)
  Receive Date: 20161003
  Receipt Date: 20170116
  Transmission Date: 20170428
  Serious: Yes (Other)
  Sender: FDA-Public Use
  Company Number: CO-B.I. PHARMACEUTICALS,INC./RIDGEFIELD-2016-BI-56079BI

PATIENT
  Age: 71 Year
  Sex: Male
  Weight: 77 kg

DRUGS (12)
  1. ENALAPRIL [Concomitant]
     Active Substance: ENALAPRIL
     Indication: HYPERTENSION
     Route: 048
     Dates: start: 2011
  2. ASA [Concomitant]
     Active Substance: ASPIRIN
     Indication: CARDIOVASCULAR EVENT PROPHYLAXIS
     Route: 048
     Dates: start: 2000
  3. ATORVASTATIN [Concomitant]
     Active Substance: ATORVASTATIN
     Indication: HYPERLIPIDAEMIA
     Route: 048
     Dates: start: 2012
  4. INSULINE GLUSINA [Concomitant]
     Indication: DIABETES MELLITUS
     Route: 058
     Dates: start: 20131127
  5. INSULINE GLARGINE [Concomitant]
     Active Substance: INSULIN GLARGINE
     Indication: DIABETES MELLITUS
     Route: 058
     Dates: start: 20131127
  6. BLINDED LINAGLIPTIN [Suspect]
     Active Substance: LINAGLIPTIN
     Indication: TYPE 2 DIABETES MELLITUS
     Route: 048
     Dates: start: 20160511
  7. CARBAMAZEPINE. [Concomitant]
     Active Substance: CARBAMAZEPINE
     Indication: DIABETIC NEUROPATHY
     Route: 048
     Dates: start: 2015
  8. ACETHAMINOPHEN [Concomitant]
     Indication: DIABETIC NEUROPATHY
     Route: 048
     Dates: start: 2015
  9. CARVEDILOL. [Concomitant]
     Active Substance: CARVEDILOL
     Indication: VENTRICULAR TACHYCARDIA
     Route: 048
     Dates: start: 2013
  10. PRAZOCINE [Concomitant]
     Indication: HYPERTENSION
     Route: 048
     Dates: start: 20160513
  11. DITOPAX [Concomitant]
     Indication: GASTRITIS PROPHYLAXIS
     Route: 048
     Dates: start: 20160606
  12. LEVOTHYROXINE. [Concomitant]
     Active Substance: LEVOTHYROXINE
     Indication: HYPOTHYROIDISM
     Route: 048
     Dates: start: 2010

REACTIONS (2)
  - Acute kidney injury [Recovered/Resolved]
  - Bladder mass [Recovered/Resolved]

NARRATIVE: CASE EVENT DATE: 20160624
